FAERS Safety Report 6696640-X (Version None)
Quarter: 2010Q2

REPORT INFORMATION
  Report Type: 
  Country: None (occurrence: None)
  Receive Date: 20100426
  Receipt Date: 20100416
  Transmission Date: 20101027
  Serious: Yes (Hospitalization)
  Sender: FDA-Public Use
  Company Number: PT-JNJCH-2010009206

PATIENT
  Age: 3 Year
  Sex: Male
  Weight: 15 kg

DRUGS (1)
  1. ACTIFED [Suspect]
     Indication: DRUG USE FOR UNKNOWN INDICATION
     Dosage: TEXT:APPROXIMATELY 85ML ONCE
     Route: 048
     Dates: start: 20100404, end: 20100404

REACTIONS (4)
  - ACCIDENTAL DRUG INTAKE BY CHILD [None]
  - BLOOD PRESSURE INCREASED [None]
  - OVERDOSE [None]
  - TACHYCARDIA [None]
